FAERS Safety Report 6198332-2 (Version None)
Quarter: 2009Q2

REPORT INFORMATION
  Report Type: 
  Country: None (occurrence: None)
  Receive Date: 20090521
  Receipt Date: 20090511
  Transmission Date: 20091009
  Serious: Yes (Other)
  Sender: FDA-Public Use
  Company Number: US-ROCHE-633686

PATIENT
  Age: 75 Year
  Sex: Male

DRUGS (3)
  1. VALIUM [Suspect]
     Indication: ANXIETY
     Dosage: 20 MG AND 20 MG PM
     Route: 048
     Dates: start: 20050101
  2. VALIUM [Suspect]
     Route: 048
  3. DIAZEPAM [Concomitant]
     Indication: ANXIETY
     Dosage: 20 MG AM AND 20 MG PM
     Route: 048

REACTIONS (3)
  - ANXIETY [None]
  - BLOOD PRESSURE INCREASED [None]
  - INSOMNIA [None]
